FAERS Safety Report 6998675-6 (Version None)
Quarter: 2010Q3

REPORT INFORMATION
  Report Type: 
  Country: None (occurrence: None)
  Receive Date: 20100920
  Receipt Date: 20091208
  Transmission Date: 20110219
  Serious: No
  Sender: FDA-Public Use
  Company Number: US-ASTRAZENECA-2009SE31033

PATIENT
  Age: 42 Year
  Sex: Male

DRUGS (3)
  1. SEROQUEL XR [Suspect]
     Route: 048
  2. RISPERDAL [Concomitant]
  3. ANTICHOLINERGIC MEDICATION [Concomitant]

REACTIONS (1)
  - URINARY RETENTION [None]
